FAERS Safety Report 21211465 (Version 1)
Quarter: 2022Q3

REPORT INFORMATION
  Report Type: Spontaneous
  Country: CH (occurrence: None)
  Receive Date: 20220815
  Receipt Date: 20220815
  Transmission Date: 20221027
  Serious: Yes (Other)
  Sender: FDA-Public Use
  Company Number: CH-ROCHE-3157663

PATIENT
  Sex: Female

DRUGS (15)
  1. MABTHERA [Suspect]
     Active Substance: RITUXIMAB
     Indication: B-cell small lymphocytic lymphoma
     Dosage: 8 WEEKLY INFUSIONS OF RITUXIMAB (4 INFUSIONS) FOLLOWED BY AN 8-WEEK BREAK, THEN 4 FURTHER INFUSIONS
     Route: 041
  2. MABTHERA [Suspect]
     Active Substance: RITUXIMAB
     Indication: Cutaneous vasculitis
  3. MABTHERA [Suspect]
     Active Substance: RITUXIMAB
     Indication: Cryoglobulinaemia
  4. MABTHERA [Suspect]
     Active Substance: RITUXIMAB
     Indication: Renal disorder
  5. MABTHERA [Suspect]
     Active Substance: RITUXIMAB
     Indication: Waldenstrom^s macroglobulinaemia
  6. IMBRUVICA [Suspect]
     Active Substance: IBRUTINIB
     Indication: B-cell small lymphocytic lymphoma
     Route: 048
  7. IMBRUVICA [Suspect]
     Active Substance: IBRUTINIB
     Indication: Cutaneous vasculitis
  8. IMBRUVICA [Suspect]
     Active Substance: IBRUTINIB
     Indication: Cryoglobulinaemia
  9. IMBRUVICA [Suspect]
     Active Substance: IBRUTINIB
     Indication: Renal disorder
  10. IMBRUVICA [Suspect]
     Active Substance: IBRUTINIB
     Indication: Waldenstrom^s macroglobulinaemia
  11. IBRUTINIB [Suspect]
     Active Substance: IBRUTINIB
     Indication: B-cell small lymphocytic lymphoma
     Route: 065
  12. IBRUTINIB [Suspect]
     Active Substance: IBRUTINIB
     Indication: Cutaneous vasculitis
  13. IBRUTINIB [Suspect]
     Active Substance: IBRUTINIB
     Indication: Cryoglobulinaemia
  14. IBRUTINIB [Suspect]
     Active Substance: IBRUTINIB
     Indication: Renal disorder
  15. IBRUTINIB [Suspect]
     Active Substance: IBRUTINIB
     Indication: Waldenstrom^s macroglobulinaemia

REACTIONS (2)
  - Disease progression [Unknown]
  - Off label use [Unknown]
